FAERS Safety Report 14526849 (Version 1)
Quarter: 2018Q1

REPORT INFORMATION
  Report Type: Report from Study
  Country: US (occurrence: US)
  Receive Date: 20180213
  Receipt Date: 20180213
  Transmission Date: 20180509
  Serious: Yes (Death)
  Sender: FDA-Public Use
  Company Number: US-EXELIXIS-CABO-18012320

PATIENT
  Sex: Male

DRUGS (11)
  1. SYNTHROID [Concomitant]
     Active Substance: LEVOTHYROXINE SODIUM
  2. THIAMINE HCL [Concomitant]
     Active Substance: THIAMINE HYDROCHLORIDE
  3. FERROUS SULFATE. [Concomitant]
     Active Substance: FERROUS SULFATE
  4. PEPCID AC [Concomitant]
     Active Substance: FAMOTIDINE
  5. FOLIC ACID. [Concomitant]
     Active Substance: FOLIC ACID
  6. OXYCODONE HYDROCHLORIDE. [Concomitant]
     Active Substance: OXYCODONE HYDROCHLORIDE
  7. REMERON [Concomitant]
     Active Substance: MIRTAZAPINE
  8. LASIX [Concomitant]
     Active Substance: FUROSEMIDE
  9. VITAMIN C [Concomitant]
     Active Substance: ASCORBIC ACID
  10. CABOMETYX [Suspect]
     Active Substance: CABOZANTINIB S-MALATE
     Indication: RENAL CANCER
     Dosage: 40 MG, QD
     Route: 048
     Dates: start: 20171211
  11. ULORIC [Concomitant]
     Active Substance: FEBUXOSTAT

REACTIONS (1)
  - Death [Fatal]
